FAERS Safety Report 5901218-9 (Version None)
Quarter: 2008Q3

REPORT INFORMATION
  Report Type: 
  Country: None (occurrence: None)
  Receive Date: 20080929
  Receipt Date: 20080612
  Transmission Date: 20090109
  Serious: No
  Sender: FDA-Public Use
  Company Number: US-BRISTOL-MYERS SQUIBB COMPANY-14224653

PATIENT
  Age: 46 Year
  Sex: Female
  Weight: 75 kg

DRUGS (2)
  1. ORENCIA [Suspect]
     Indication: RHEUMATOID ARTHRITIS
     Dates: start: 20070901
  2. CALCIUM + VITAMIN D [Concomitant]

REACTIONS (5)
  - CHILLS [None]
  - ERYTHEMA [None]
  - PHOTOSENSITIVITY REACTION [None]
  - POOR QUALITY SLEEP [None]
  - RASH [None]
